FAERS Safety Report 16596067 (Version 3)
Quarter: 2025Q4

REPORT INFORMATION
  Report Type: Spontaneous
  Country: EU (occurrence: EU)
  Receive Date: 20190719
  Receipt Date: 20251003
  Transmission Date: 20260117
  Serious: Yes (Life-Threatening, Hospitalization, Other)
  Sender: AUROBINDO
  Company Number: EU-AUROBINDO-AUR-APL-2019-029148

PATIENT
  Age: 12 Year
  Sex: Female
  Weight: 28 kg

DRUGS (15)
  1. MYCOPHENOLIC ACID [Interacting]
     Active Substance: MYCOPHENOLIC ACID
     Indication: Acute kidney injury
     Dosage: 600 MILLIGRAM/SQ. METER (DAY 347)
     Route: 065
  2. ACYCLOVIR [Interacting]
     Active Substance: ACYCLOVIR
     Indication: Product used for unknown indication
     Dosage: UNK
     Route: 065
  3. COLCHICINE [Interacting]
     Active Substance: COLCHICINE
     Indication: Capillary leak syndrome
     Dosage: 10 MICROGRAM/KILOGRAM, DAILY
     Route: 048
  4. COLCHICINE [Interacting]
     Active Substance: COLCHICINE
     Indication: Polyserositis
     Dosage: 0.13 MILLIGRAM, ONCE A DAY (0.125 MG, 1D)
     Route: 048
  5. COLCHICINE [Interacting]
     Active Substance: COLCHICINE
     Dosage: 1 MILLIGRAM, ONCE A DAY
     Route: 048
  6. COLCHICINE [Interacting]
     Active Substance: COLCHICINE
     Dosage: 0.5 MILLIGRAM, ONCE A DAY, 1D
     Route: 048
  7. AMIKACIN SULFATE [Suspect]
     Active Substance: AMIKACIN SULFATE
     Indication: Product used for unknown indication
     Dosage: UNK
     Route: 065
  8. VANCOMYCIN [Suspect]
     Active Substance: VANCOMYCIN
     Indication: Product used for unknown indication
     Dosage: UNK
     Route: 065
  9. ALBUMIN HUMAN [Concomitant]
     Active Substance: ALBUMIN HUMAN
     Indication: Hypoalbuminaemia
     Dosage: DAILY (1-2 G/KG PER DAY)
     Route: 065
  10. PREDNISONE [Concomitant]
     Active Substance: PREDNISONE
     Indication: Immunosuppressant drug therapy
     Dosage: UNK, PREDNISONE TAPERING ON DAYS 44 OF TRANSPLANT
     Route: 065
  11. PREDNISONE [Concomitant]
     Active Substance: PREDNISONE
     Indication: Capillary leak syndrome
     Dosage: UNK
     Route: 065
  12. METHYLPREDNISOLONE [Concomitant]
     Active Substance: METHYLPREDNISOLONE
     Indication: Acute kidney injury
     Dosage: UNK (2?5 MG/KG PER DOSE)
     Route: 042
  13. METHYLPREDNISOLONE [Concomitant]
     Active Substance: METHYLPREDNISOLONE
     Dosage: 10 MILLIGRAM/KILOGRAM, EVERY OTHER DAY (DAY 347)
     Route: 065
  14. CYCLOSPORINE [Concomitant]
     Active Substance: CYCLOSPORINE
     Indication: Immunosuppressant drug therapy
     Dosage: UNK
     Route: 065
  15. CYCLOSPORINE [Concomitant]
     Active Substance: CYCLOSPORINE
     Indication: Capillary leak syndrome

REACTIONS (6)
  - Capillary leak syndrome [Recovered/Resolved]
  - Drug interaction [Recovered/Resolved]
  - Leukopenia [Recovered/Resolved]
  - Acute kidney injury [Recovered/Resolved]
  - Nephropathy toxic [Recovered/Resolved]
  - Renal impairment [Recovered/Resolved]
